FAERS Safety Report 5221082-3 (Version None)
Quarter: 2007Q1

REPORT INFORMATION
  Report Type: 
  Country: None (occurrence: None)
  Receive Date: 20070126
  Receipt Date: 20070118
  Transmission Date: 20070707
  Serious: Yes (Other)
  Sender: FDA-Public Use
  Company Number: 200616307EU

PATIENT
  Sex: Male

DRUGS (1)
  1. NICOTINE [Suspect]
     Indication: DRUG USE FOR UNKNOWN INDICATION
     Dosage: 4MG SEE DOSAGE TEXT
     Route: 002

REACTIONS (7)
  - DRUG DEPENDENCE [None]
  - DRUG WITHDRAWAL SYNDROME [None]
  - GASTRIC ULCER [None]
  - INCORRECT DRUG ADMINISTRATION DURATION [None]
  - IRRITABILITY [None]
  - OVERDOSE [None]
  - POLYP [None]
